FAERS Safety Report 21363683 (Version 2)
Quarter: 2023Q1

REPORT INFORMATION
  Report Type: Report from Study
  Country: GB (occurrence: GB)
  Receive Date: 20220922
  Receipt Date: 20230209
  Transmission Date: 20230417
  Serious: Yes (Other)
  Sender: FDA-Public Use
  Company Number: GB-TAKEDA-2021TUS045647

PATIENT
  Sex: Female

DRUGS (1)
  1. VEDOLIZUMAB [Suspect]
     Active Substance: VEDOLIZUMAB
     Indication: Crohn^s disease
     Dosage: 108 MILLIGRAM, Q2WEEKS
     Route: 058
     Dates: start: 20210702

REACTIONS (12)
  - Breast cancer female [Unknown]
  - Migraine [Unknown]
  - General physical health deterioration [Unknown]
  - Oral pain [Unknown]
  - Angular cheilitis [Unknown]
  - Rosacea [Unknown]
  - Device issue [Unknown]
  - Product leakage [Unknown]
  - Rash [Unknown]
  - Oropharyngeal pain [Unknown]
  - Fatigue [Unknown]
  - Mental disorder [Unknown]
